FAERS Safety Report 14445104 (Version 2)
Quarter: 2018Q1

REPORT INFORMATION
  Report Type: Spontaneous
  Country: US (occurrence: US)
  Receive Date: 20180126
  Receipt Date: 20180321
  Transmission Date: 20180509
  Serious: No
  Sender: FDA-Public Use
  Company Number: US-PFIZER INC-2018031305

PATIENT

DRUGS (1)
  1. HEPARIN SODIUM. [Suspect]
     Active Substance: HEPARIN SODIUM
     Dosage: 500 ML, UNK (IN 0.45% SODIUM CHLORIDE)
     Route: 042

REACTIONS (1)
  - Anticoagulation drug level below therapeutic [Unknown]
